FAERS Safety Report 20044259 (Version 1)
Quarter: 2021Q4

REPORT INFORMATION
  Report Type: Spontaneous
  Country: CA (occurrence: CA)
  Receive Date: 20211108
  Receipt Date: 20211108
  Transmission Date: 20220303
  Serious: Yes (Hospitalization, Other)
  Sender: FDA-Public Use
  Company Number: CA-NOVOPROD-863463

PATIENT
  Sex: Female

DRUGS (1)
  1. OZEMPIC [Suspect]
     Active Substance: SEMAGLUTIDE
     Indication: Type 2 diabetes mellitus
     Dosage: 0.5 MG
     Route: 065
     Dates: start: 202109

REACTIONS (4)
  - Swelling [Not Recovered/Not Resolved]
  - Eye contusion [Not Recovered/Not Resolved]
  - Fall [Unknown]
  - Dizziness [Unknown]
